FAERS Safety Report 11482929 (Version 1)
Quarter: 2015Q3

REPORT INFORMATION
  Report Type: Spontaneous
  Country: US (occurrence: US)
  Receive Date: 20150903
  Receipt Date: 20150903
  Transmission Date: 20151125
  Serious: No
  Sender: FDA-Public Use
  Company Number: US-ELI_LILLY_AND_COMPANY-US201205006190

PATIENT
  Age: 64 Year
  Sex: Male

DRUGS (1)
  1. CYMBALTA [Suspect]
     Active Substance: DULOXETINE HYDROCHLORIDE
     Indication: MUSCULOSKELETAL PAIN
     Dosage: UNK, UNKNOWN
     Dates: start: 20120509

REACTIONS (4)
  - Depressed mood [Unknown]
  - Emotional disorder [Unknown]
  - Musculoskeletal pain [Not Recovered/Not Resolved]
  - Weight decreased [Unknown]
